FAERS Safety Report 19240412 (Version 1)
Quarter: 2021Q2

REPORT INFORMATION
  Report Type: Spontaneous
  Country: US (occurrence: US)
  Receive Date: 20210511
  Receipt Date: 20210511
  Transmission Date: 20210717
  Serious: Yes (Death, Other)
  Sender: FDA-Public Use
  Company Number: US-GLAND PHARMA LIMITED-2021US003657

PATIENT
  Age: 29 Year
  Sex: Male

DRUGS (6)
  1. GEMCITABINE. [Suspect]
     Active Substance: GEMCITABINE
     Dosage: 500 MG/M2
     Route: 065
  2. CISPLATIN. [Concomitant]
     Active Substance: CISPLATIN
     Indication: CHOLANGIOCARCINOMA
     Dosage: 25 MG/M2 (ON DAYS 1 AND 8 OF EACH 21?DAY CYCLE FOR A TOTAL OF 9 CYCLES)
     Route: 042
  3. GEMCITABINE. [Suspect]
     Active Substance: GEMCITABINE
     Dosage: 800 MG/M2
     Route: 065
  4. GEMCITABINE. [Suspect]
     Active Substance: GEMCITABINE
     Indication: CHOLANGIOCARCINOMA
     Dosage: 1000 MG/M2 (ON DAYS 1 AND 8 OF EACH 21?DAY CYCLE FOR A TOTAL OF 9 CYCLES)
     Route: 042
  5. GEMCITABINE. [Suspect]
     Active Substance: GEMCITABINE
     Dosage: 700 MG/M2
     Route: 065
  6. CISPLATIN. [Concomitant]
     Active Substance: CISPLATIN
     Dosage: UNK
     Route: 065

REACTIONS (9)
  - Thrombotic microangiopathy [Unknown]
  - Hydronephrosis [Unknown]
  - Nephrolithiasis [Unknown]
  - Atypical haemolytic uraemic syndrome [Unknown]
  - Ascites [Unknown]
  - Splenomegaly [Unknown]
  - Disease progression [Fatal]
  - Myelosuppression [Unknown]
  - Product use in unapproved indication [Unknown]
